FAERS Safety Report 7642396-3 (Version None)
Quarter: 2011Q3

REPORT INFORMATION
  Report Type: 
  Country: None (occurrence: None)
  Receive Date: 20110728
  Receipt Date: 20100716
  Transmission Date: 20111222
  Serious: No
  Sender: FDA-Public Use
  Company Number: US-MYLANLABS-2010S1011330

PATIENT
  Age: 65 Year
  Sex: Female

DRUGS (9)
  1. OXYCONTIN [Concomitant]
  2. LEVOTHYROXINE SODIUM [Suspect]
     Route: 048
     Dates: start: 20100614, end: 20100620
  3. HYDROMORPHONE HCL [Concomitant]
  4. CELEBREX [Concomitant]
  5. LORAZEPAM [Concomitant]
     Dosage: BID PRN
  6. ZOLPIDEM [Concomitant]
  7. COMBIVENT [Concomitant]
  8. NEXIUM [Concomitant]
  9. LEVOTHYROXINE SODIUM [Suspect]
     Indication: HYPOTHYROIDISM
     Route: 048
     Dates: start: 20100614, end: 20100620

REACTIONS (2)
  - FATIGUE [None]
  - SOMNOLENCE [None]
